FAERS Safety Report 14647757 (Version 1)
Quarter: 2018Q1

REPORT INFORMATION
  Report Type: Spontaneous
  Country: US (occurrence: US)
  Receive Date: 20180315
  Receipt Date: 20180315
  Transmission Date: 20180509
  Serious: Yes (Other)
  Sender: FDA-Public Use
  Company Number: None

PATIENT
  Age: 69 Year
  Sex: Female

DRUGS (1)
  1. HIZENTRA [Suspect]
     Active Substance: HUMAN IMMUNOGLOBULIN G
     Indication: SELECTIVE IGA IMMUNODEFICIENCY
     Route: 042
     Dates: start: 20180307

REACTIONS (4)
  - Glomerular filtration rate decreased [None]
  - Blood creatinine increased [None]
  - Blood urea increased [None]
  - Renal disorder [None]

NARRATIVE: CASE EVENT DATE: 20180312
